FAERS Safety Report 18458020 (Version 2)
Quarter: 2020Q4

REPORT INFORMATION
  Report Type: Spontaneous
  Country: DE (occurrence: DE)
  Receive Date: 20201103
  Receipt Date: 20201118
  Transmission Date: 20210114
  Serious: Yes (Hospitalization, Other)
  Sender: FDA-Public Use
  Company Number: DE-MYLANLABS-2020M1091121

PATIENT
  Sex: Female
  Weight: 45 kg

DRUGS (1)
  1. PEGFILGRASTIM [Suspect]
     Active Substance: PEGFILGRASTIM
     Indication: NEUTROPENIA
     Dosage: STRENGTH 6 MG,THERAPY START DATE: 20-APR-2020
     Route: 058

REACTIONS (3)
  - Sepsis [Unknown]
  - Renal failure [Unknown]
  - Ileus paralytic [Unknown]

NARRATIVE: CASE EVENT DATE: 20200313
